FAERS Safety Report 19123849 (Version 2)
Quarter: 2021Q2

REPORT INFORMATION
  Report Type: Spontaneous
  Country: JP (occurrence: JP)
  Receive Date: 20210412
  Receipt Date: 20210605
  Transmission Date: 20210717
  Serious: No
  Sender: FDA-Public Use
  Company Number: JP-GALDERMA-JP2021006200

PATIENT
  Age: 65 Year
  Sex: Female

DRUGS (3)
  1. CALCIPOTRIOL HYDRATE BETAMETHASONE DIPROPIONATE GEL [Concomitant]
     Indication: PSORIASIS
     Route: 061
     Dates: start: 202101
  2. COMCLO [Suspect]
     Active Substance: CLOBETASOL PROPIONATE
     Indication: PSORIASIS
     Dosage: 0.05%
     Route: 061
     Dates: start: 20210212, end: 20210302
  3. EPINASTINE. [Concomitant]
     Active Substance: EPINASTINE HYDROCHLORIDE
     Indication: PRODUCT USED FOR UNKNOWN INDICATION
     Route: 065

REACTIONS (1)
  - Application site ulcer [Unknown]

NARRATIVE: CASE EVENT DATE: 20210303
